FAERS Safety Report 19574245 (Version 1)
Quarter: 2021Q3

REPORT INFORMATION
  Report Type: Spontaneous
  Country: US (occurrence: US)
  Receive Date: 20210719
  Receipt Date: 20210719
  Transmission Date: 20211014
  Serious: No
  Sender: FDA-Public Use
  Company Number: US-JNJFOC-20210703749

PATIENT
  Age: 70 Year
  Sex: Male

DRUGS (1)
  1. MENS ROGAINE EXTRA STRENGTH [Suspect]
     Active Substance: MINOXIDIL
     Indication: ALOPECIA
     Dosage: SQUIRTS DIRECTLY ONTO SCALP / APPLIES DIRECTLY TO SCALP, USES MORE THAN RECOMMENDED / USE MORE
     Route: 061
     Dates: start: 2020

REACTIONS (2)
  - Wrong technique in product usage process [Unknown]
  - Overdose [Unknown]

NARRATIVE: CASE EVENT DATE: 2020
